FAERS Safety Report 21304183 (Version 1)
Quarter: 2022Q3

REPORT INFORMATION
  Report Type: Spontaneous
  Country: US (occurrence: None)
  Receive Date: 20220907
  Receipt Date: 20220907
  Transmission Date: 20221027
  Serious: No
  Sender: FDA-Public Use
  Company Number: US-ARIS GLOBAL-202107-1126

PATIENT
  Sex: Female

DRUGS (14)
  1. OXERVATE [Suspect]
     Active Substance: CENEGERMIN-BKBJ
     Indication: Neurotrophic keratopathy
     Route: 047
     Dates: start: 20210524
  2. ATIVAN [Concomitant]
     Active Substance: LORAZEPAM
  3. DEXAMETHASONE [Concomitant]
     Active Substance: DEXAMETHASONE
  4. NITROFURANTOIN [Concomitant]
     Active Substance: NITROFURANTOIN
  5. PIQRAY [Concomitant]
     Active Substance: ALPELISIB
  6. TUKYSA [Concomitant]
     Active Substance: TUCATINIB
  7. POTASSIUM CHLORIDE [Concomitant]
     Active Substance: POTASSIUM CHLORIDE
     Dosage: PACKET
  8. METFORMIN HYDROCHLORIDE [Concomitant]
     Active Substance: METFORMIN HYDROCHLORIDE
  9. LISINOPRIL [Concomitant]
     Active Substance: LISINOPRIL
  10. TIMOLOL MALEATE [Concomitant]
     Active Substance: TIMOLOL MALEATE
  11. LUMIGAN [Concomitant]
     Active Substance: BIMATOPROST
  12. SYSTANE (HYPROMELLOSE 2910 (4000 MPA.S)) [Concomitant]
     Active Substance: HYPROMELLOSE 2910 (4000 MPA.S)
     Dosage: 0.3%-0.4% DROPERETTE
  13. THERATEARS [Concomitant]
     Active Substance: CARBOXYMETHYLCELLULOSE SODIUM
     Dosage: DROPERETTE
  14. MOXIFLOXACIN [Concomitant]
     Active Substance: MOXIFLOXACIN

REACTIONS (1)
  - Eye pain [Not Recovered/Not Resolved]
